FAERS Safety Report 9052646 (Version 1)
Quarter: 2013Q1

REPORT INFORMATION
  Report Type: Spontaneous
  Country: CA (occurrence: CA)
  Receive Date: 20130207
  Receipt Date: 20130207
  Transmission Date: 20140127
  Serious: Yes (Life-Threatening, Other)
  Sender: FDA-Public Use
  Company Number: CA-PFIZER INC-2011305693

PATIENT
  Age: 57 Year
  Sex: Male

DRUGS (8)
  1. ATENOLOL [Suspect]
     Dosage: 50 TABLETS, UNK
     Route: 048
  2. AMLODIPINE [Concomitant]
     Dosage: UNK
     Route: 065
  3. LITHIUM [Concomitant]
     Dosage: UNK
     Route: 065
  4. METHYLPHENIDATE [Concomitant]
     Dosage: UNK
     Route: 065
  5. LAMOTRIGINE [Concomitant]
     Dosage: UNK
     Route: 065
  6. LEVOTHYROXINE [Concomitant]
     Dosage: UNK
     Route: 065
  7. CLONAZEPAM [Concomitant]
     Dosage: UNK
     Route: 065
  8. MIRTAZAPINE [Concomitant]
     Dosage: UNK
     Route: 065

REACTIONS (5)
  - Overdose [Recovered/Resolved]
  - Suicide attempt [Unknown]
  - Hypotension [Recovered/Resolved]
  - Bradycardia [Recovered/Resolved]
  - Depressed level of consciousness [Recovering/Resolving]
